FAERS Safety Report 16944289 (Version 3)
Quarter: 2020Q1

REPORT INFORMATION
  Report Type: Spontaneous
  Country: DK (occurrence: DK)
  Receive Date: 20191022
  Receipt Date: 20200107
  Transmission Date: 20200409
  Serious: Yes (Hospitalization)
  Sender: FDA-Public Use
  Company Number: DK-ACCORD-158468

PATIENT
  Age: 44 Year
  Sex: Male

DRUGS (3)
  1. OXALIPLATIN. [Suspect]
     Active Substance: OXALIPLATIN
     Indication: PANCREATIC CARCINOMA
     Dosage: STRENGTH: 5 MG / ML. DOSE: UNKNOWN.
     Route: 042
     Dates: start: 20161221, end: 201707
  2. CAPECITABINE. [Suspect]
     Active Substance: CAPECITABINE
     Indication: PANCREATIC CARCINOMA
     Dosage: STRENGTH: UNKNOWN. DOSE: UNKNOWN.
     Route: 048
     Dates: start: 20161215, end: 201707
  3. GEMCITABINE/GEMCITABINE HYDROCHLORIDE [Suspect]
     Active Substance: GEMCITABINE\GEMCITABINE HYDROCHLORIDE
     Indication: PANCREATIC CARCINOMA
     Dosage: STRENGTH: 1 G. DOSAGE: VARIABLE.
     Route: 042
     Dates: start: 20161215

REACTIONS (7)
  - Off label use [Unknown]
  - Dyspnoea [Recovered/Resolved]
  - Pericardial effusion [Recovered/Resolved]
  - Oedema peripheral [Unknown]
  - Hypertension [Not Recovered/Not Resolved]
  - Renal impairment [Unknown]
  - Dizziness [Unknown]

NARRATIVE: CASE EVENT DATE: 201709
